FAERS Safety Report 14047112 (Version 1)
Quarter: 2017Q4

REPORT INFORMATION
  Report Type: Other
  Country: TR (occurrence: TR)
  Receive Date: 20171005
  Receipt Date: 20171005
  Transmission Date: 20180321
  Serious: Yes (Other)
  Sender: FDA-Public Use
  Company Number: TR-FRESENIUS KABI-FK201708216

PATIENT
  Age: 9 Year
  Sex: Female
  Weight: 35 kg

DRUGS (1)
  1. GANCICLOVIR FOR INJECTION (MANUFACTURER UNKNOWN) [Suspect]
     Active Substance: GANCICLOVIR
     Indication: PNEUMONIA CYTOMEGALOVIRAL
     Route: 065

REACTIONS (1)
  - Anaphylactic reaction [Recovered/Resolved]
